FAERS Safety Report 7409488 (Version 2)
Quarter: 2020Q3

REPORT INFORMATION
  Report Type: Report from Study
  Country: SG (occurrence: SG)
  Receive Date: 20100604
  Receipt Date: 20100706
  Transmission Date: 20201105
  Serious: Yes (Hospitalization)
  Sender: FDA-Public Use
  Company Number: SG-WYE-H15444010

PATIENT
  Age: 59 Year
  Sex: Male
  Weight: 60.3 kg

DRUGS (12)
  1. RITUXIMAB. [Suspect]
     Active Substance: RITUXIMAB
     Dosage: 375 MG/M^2 ONCE
     Route: 042
     Dates: start: 20100616, end: 20100616
  2. ACICLOVIR [Concomitant]
     Active Substance: ACYCLOVIR
     Indication: PROPHYLAXIS
     Route: 048
     Dates: start: 20100426
  3. GEMCITABINE. [Suspect]
     Active Substance: GEMCITABINE
     Indication: NON-HODGKIN^S LYMPHOMA
     Dosage: 500 MG/M^2 ONCE
     Route: 042
     Dates: start: 20100519, end: 20100519
  4. INOTUZUMAB OZOGAMICIN [Suspect]
     Active Substance: INOTUZUMAB OZOGAMICIN
     Indication: NON-HODGKIN^S LYMPHOMA
     Dosage: 0.8 MG/M^2 ONCE
     Route: 042
     Dates: start: 20100520, end: 20100520
  5. INOTUZUMAB OZOGAMICIN [Suspect]
     Active Substance: INOTUZUMAB OZOGAMICIN
     Dosage: 0.8 MG/M^2 ONCE
     Route: 042
     Dates: start: 20100616, end: 20100616
  6. RITUXIMAB. [Suspect]
     Active Substance: RITUXIMAB
     Indication: NON-HODGKIN^S LYMPHOMA
     Dosage: 375 MG/M^2 ONCE
     Route: 042
     Dates: start: 20100519, end: 20100519
  7. CISPLATIN. [Suspect]
     Active Substance: CISPLATIN
     Dosage: 37.5 MG/M^2 ONCE
     Route: 042
     Dates: start: 20100616, end: 20100616
  8. FAMOTIDINE. [Concomitant]
     Active Substance: FAMOTIDINE
     Indication: PROPHYLAXIS
     Route: 048
     Dates: start: 20100426, end: 2010
  9. GEMCITABINE. [Suspect]
     Active Substance: GEMCITABINE
     Dosage: 500 MG/M^2 ONCE
     Route: 042
     Dates: start: 20100616, end: 20100616
  10. CISPLATIN. [Suspect]
     Active Substance: CISPLATIN
     Indication: NON-HODGKIN^S LYMPHOMA
     Dosage: 37.5 MG/M^2 ONCE
     Route: 042
     Dates: start: 20100519, end: 20100519
  11. DEXAMETHASONE. [Suspect]
     Active Substance: DEXAMETHASONE
     Indication: NON-HODGKIN^S LYMPHOMA
     Dosage: 40 MG FOR 4 DAYS
     Route: 048
     Dates: start: 20100519, end: 201005
  12. DEXAMETHASONE. [Suspect]
     Active Substance: DEXAMETHASONE
     Dosage: 40 MG FOR 4 DAYS
     Route: 048
     Dates: start: 20100616, end: 201006

REACTIONS (1)
  - Thrombocytopenia [Recovered/Resolved]

NARRATIVE: CASE EVENT DATE: 20100529
